FAERS Safety Report 5391970-6 (Version None)
Quarter: 2007Q3

REPORT INFORMATION
  Report Type: 
  Country: None (occurrence: None)
  Receive Date: 20070720
  Receipt Date: 20070709
  Transmission Date: 20080115
  Serious: Yes (Hospitalization, Other)
  Sender: FDA-Public Use
  Company Number: PHEH2007US04314

PATIENT
  Age: 61 Year
  Sex: Male

DRUGS (4)
  1. ZELNORM [Suspect]
     Indication: IRRITABLE BOWEL SYNDROME
     Dosage: 6 MG, BID
     Route: 048
     Dates: start: 20060101, end: 20070403
  2. PAXIL [Concomitant]
  3. ATIVAN [Concomitant]
  4. DILANTIN KAPSEAL [Concomitant]

REACTIONS (20)
  - ABDOMINAL PAIN [None]
  - ABDOMINAL TENDERNESS [None]
  - ACUTE ABDOMEN [None]
  - ASTHENIA [None]
  - BACK PAIN [None]
  - BLOOD ALKALINE PHOSPHATASE INCREASED [None]
  - BLOOD GLUCOSE INCREASED [None]
  - CONSTIPATION [None]
  - DIVERTICULUM INTESTINAL [None]
  - DIZZINESS [None]
  - DRUG LEVEL BELOW THERAPEUTIC [None]
  - EOSINOPHIL COUNT INCREASED [None]
  - EXOSTOSIS [None]
  - LOSS OF CONSCIOUSNESS [None]
  - MEAN PLATELET VOLUME DECREASED [None]
  - MONOCYTE COUNT INCREASED [None]
  - NAUSEA [None]
  - NEUTROPHIL COUNT DECREASED [None]
  - PAIN IN EXTREMITY [None]
  - RED CELL DISTRIBUTION WIDTH INCREASED [None]
